FAERS Safety Report 21814250 (Version 4)
Quarter: 2023Q1

REPORT INFORMATION
  Report Type: Spontaneous
  Country: EG (occurrence: EG)
  Receive Date: 20230104
  Receipt Date: 20230228
  Transmission Date: 20230417
  Serious: Yes (Other)
  Sender: FDA-Public Use
  Company Number: EG-NOVOPROD-1007008

PATIENT
  Sex: Female

DRUGS (3)
  1. NOVORAPID [Suspect]
     Active Substance: INSULIN ASPART
     Dosage: UNK(REPLACED)
  2. NOVORAPID [Suspect]
     Active Substance: INSULIN ASPART
     Indication: Type 1 diabetes mellitus
     Dosage: UNK
  3. TRESIBA [Concomitant]
     Active Substance: INSULIN DEGLUDEC
     Indication: Type 1 diabetes mellitus
     Dosage: UNK ONCE DAILY

REACTIONS (6)
  - Hyperglycaemia [Not Recovered/Not Resolved]
  - Device breakage [Unknown]
  - Device leakage [Unknown]
  - Drug ineffective [Unknown]
  - Product storage error [Unknown]
  - Multiple use of single-use product [Unknown]
